FAERS Safety Report 21195449 (Version 2)
Quarter: 2022Q3

REPORT INFORMATION
  Report Type: Report from Study
  Country: FR (occurrence: None)
  Receive Date: 20220810
  Receipt Date: 20220928
  Transmission Date: 20221027
  Serious: Yes (Hospitalization, Other)
  Sender: FDA-Public Use
  Company Number: FR-ROCHE-2998410

PATIENT
  Age: 57 Year
  Sex: Female
  Weight: 56 kg

DRUGS (5)
  1. ATEZOLIZUMAB [Suspect]
     Active Substance: ATEZOLIZUMAB
     Indication: Squamous cell carcinoma of the cervix
     Dosage: ON 09/DEC/2021, HE RECEIVED LAST DOSE (1200 MG) OF ATEZOLIZUMAB.
     Route: 041
     Dates: start: 20211027
  2. ATORVASTATIN [Concomitant]
     Active Substance: ATORVASTATIN
     Indication: Squamous cell carcinoma of the cervix
  3. AMLODIPINE [Concomitant]
     Active Substance: AMLODIPINE BESYLATE
  4. CEFEPIME [Concomitant]
     Active Substance: CEFEPIME HYDROCHLORIDE
     Dosage: 2G/1H
     Dates: start: 20211231
  5. CEFEPIME [Concomitant]
     Active Substance: CEFEPIME HYDROCHLORIDE
     Dosage: 1G/8 H
     Dates: start: 20220103, end: 20220107

REACTIONS (7)
  - Device related bacteraemia [Recovered/Resolved with Sequelae]
  - Infusion related reaction [Recovered/Resolved]
  - Colitis [Recovered/Resolved]
  - Tachycardia [Unknown]
  - Pyrexia [Unknown]
  - Hypertension [Unknown]
  - Speech disorder [Unknown]

NARRATIVE: CASE EVENT DATE: 20211230
